FAERS Safety Report 20501409 (Version 2)
Quarter: 2022Q1

REPORT INFORMATION
  Report Type: Spontaneous
  Country: US (occurrence: US)
  Receive Date: 20220222
  Receipt Date: 20220328
  Transmission Date: 20220424
  Serious: Yes (Hospitalization, Other)
  Sender: FDA-Public Use
  Company Number: US-PFIZER INC-202200250116

PATIENT
  Age: 66 Year
  Sex: Male

DRUGS (1)
  1. SOMAVERT [Suspect]
     Active Substance: PEGVISOMANT
     Dosage: 20 MG, DAILY
     Route: 058

REACTIONS (5)
  - Coma [Recovered/Resolved with Sequelae]
  - Gastric ulcer [Recovered/Resolved with Sequelae]
  - Oesophageal ulcer [Recovered/Resolved with Sequelae]
  - Sepsis [Unknown]
  - Gait inability [Recovering/Resolving]

NARRATIVE: CASE EVENT DATE: 20211101
